FAERS Safety Report 4371442-8 (Version None)
Quarter: 2004Q2

REPORT INFORMATION
  Report Type: 
  Country: None (occurrence: None)
  Receive Date: 20040602
  Receipt Date: 20040521
  Transmission Date: 20050107
  Serious: Yes (Other)
  Sender: FDA-Public Use
  Company Number: US-JNJFOC-20040500138

PATIENT
  Age: 85 Year
  Sex: Male

DRUGS (5)
  1. REMICADE [Suspect]
     Indication: RHEUMATOID ARTHRITIS
     Dosage: 300 MG, INTRAVENOUS
     Route: 042
     Dates: start: 20011009
  2. METHOTREXATE SODIUM [Concomitant]
  3. PREDNISONE [Concomitant]
  4. DALOBID (DIFLUNISAL) [Concomitant]
  5. PERCOCET [Concomitant]

REACTIONS (3)
  - BLADDER NEOPLASM [None]
  - NEOPLASM RECURRENCE [None]
  - PROSTATE CANCER [None]
